FAERS Safety Report 16397442 (Version 1)
Quarter: 2019Q2

REPORT INFORMATION
  Report Type: Report from Study
  Country: US (occurrence: US)
  Receive Date: 20190606
  Receipt Date: 20190606
  Transmission Date: 20190711
  Serious: No
  Sender: FDA-Public Use
  Company Number: US-IPSEN BIOPHARMACEUTICALS, INC.-2019-09046

PATIENT
  Sex: Female

DRUGS (1)
  1. SOMATULINE DEPOT [Suspect]
     Active Substance: LANREOTIDE ACETATE
     Indication: CARCINOID TUMOUR OF THE LIVER
     Dosage: UPPER OUTER BUTTOCKS ROTATE SIDES
     Route: 058

REACTIONS (2)
  - Nausea [Recovering/Resolving]
  - Malaise [Recovering/Resolving]
